FAERS Safety Report 22368994 (Version 1)
Quarter: 2023Q2

REPORT INFORMATION
  Report Type: Spontaneous
  Country: DE (occurrence: DE)
  Receive Date: 20230525
  Receipt Date: 20230525
  Transmission Date: 20230721
  Serious: Yes (Other)
  Sender: FDA-Public Use
  Company Number: DE-NORGINE LIMITED-NOR202301889

PATIENT
  Age: 60 Year
  Sex: Female
  Weight: 64 kg

DRUGS (1)
  1. MOVIPREP [Suspect]
     Active Substance: ASCORBIC ACID\POLYETHYLENE GLYCOL 3350\POTASSIUM CHLORIDE\SODIUM ASCORBATE\SODIUM CHLORIDE\SODIUM SU
     Indication: Bowel preparation
     Dosage: TOOK SACHET A AND B
     Route: 048
     Dates: start: 20230514, end: 20230515

REACTIONS (6)
  - Circulatory collapse [Recovered/Resolved]
  - Syncope [Recovered/Resolved]
  - Cold sweat [Recovered/Resolved]
  - Fatigue [Recovered/Resolved]
  - Retching [Recovered/Resolved]
  - Nausea [Recovered/Resolved]

NARRATIVE: CASE EVENT DATE: 20230515
